FAERS Safety Report 8946899 (Version 1)
Quarter: 2012Q4

REPORT INFORMATION
  Report Type: 
  Country: JP (occurrence: JP)
  Receive Date: 20121205
  Receipt Date: 20121205
  Transmission Date: 20130627
  Serious: Yes (Disabling, Congenital Anomaly)
  Sender: FDA-Public Use
  Company Number: JP-GLAXOSMITHKLINE-B0848877A

PATIENT

DRUGS (2)
  1. PAXIL [Suspect]
     Indication: ANXIETY DISORDER
     Dosage: 5MG per day
     Route: 064
  2. FLUTOPRAZEPAM [Suspect]
     Indication: ANXIETY DISORDER
     Dosage: 2MG per day
     Route: 064

REACTIONS (2)
  - Syndactyly [Unknown]
  - Foetal exposure during pregnancy [Unknown]
